FAERS Safety Report 23340243 (Version 3)
Quarter: 2024Q1

REPORT INFORMATION
  Report Type: Spontaneous
  Country: US (occurrence: US)
  Receive Date: 20231227
  Receipt Date: 20240105
  Transmission Date: 20240410
  Serious: Yes (Hospitalization)
  Sender: FDA-Public Use
  Company Number: US-SA-2023SA395913

PATIENT
  Age: 17 Year
  Sex: Female

DRUGS (4)
  1. CABLIVI [Suspect]
     Active Substance: CAPLACIZUMAB-YHDP
     Indication: Thrombotic microangiopathy
     Dosage: 11 MG, QD
     Route: 058
     Dates: start: 20231216
  2. CABLIVI [Suspect]
     Active Substance: CAPLACIZUMAB-YHDP
     Indication: Thrombotic microangiopathy
     Dosage: 11 MG, QD
     Route: 058
     Dates: start: 20231216
  3. CABLIVI [Suspect]
     Active Substance: CAPLACIZUMAB-YHDP
     Indication: Thrombotic microangiopathy
     Dosage: 11 MG, QD
     Route: 058
     Dates: start: 20231216
  4. CABLIVI [Suspect]
     Active Substance: CAPLACIZUMAB-YHDP
     Indication: Thrombotic microangiopathy
     Dosage: 11 MG, QD
     Route: 058
     Dates: start: 20231216

REACTIONS (6)
  - Hospitalisation [Recovered/Resolved]
  - Abdominal pain upper [Unknown]
  - ADAMTS13 activity decreased [Unknown]
  - Off label use [Unknown]
  - Product use in unapproved indication [Unknown]
  - Product administered to patient of inappropriate age [Unknown]

NARRATIVE: CASE EVENT DATE: 20230101
